APPROVED DRUG PRODUCT: NUBAIN
Active Ingredient: NALBUPHINE HYDROCHLORIDE
Strength: 100MG/10ML (10MG/ML) **Federal Register determination that product was not discontinued or withdrawn for safety or effectiveness reasons**
Dosage Form/Route: SOLUTION;INTRAMUSCULAR, INTRAVENOUS, SUBCUTANEOUS
Application: N018024 | Product #003
Applicant: PH HEALTH LTD
Approved: Approved Prior to Jan 1, 1982 | RLD: Yes | RS: No | Type: DISCN